FAERS Safety Report 9377800 (Version 1)
Quarter: 2013Q3

REPORT INFORMATION
  Report Type: Spontaneous
  Country: JP (occurrence: JP)
  Receive Date: 20130701
  Receipt Date: 20130701
  Transmission Date: 20140515
  Serious: Yes (Hospitalization)
  Sender: FDA-Public Use
  Company Number: JP-B.I. PHARMACEUTICALS,INC./RIDGEFIELD-2013-BI-18354NB

PATIENT
  Age: 75 Year
  Sex: Female

DRUGS (4)
  1. SIFROL [Suspect]
     Dosage: 0.75 MG
     Route: 065
  2. MENESIT [Concomitant]
     Route: 048
  3. AMLODIPINE [Concomitant]
     Route: 048
  4. GASMOTIN [Concomitant]
     Route: 048

REACTIONS (1)
  - Lumbar vertebral fracture [Not Recovered/Not Resolved]
